FAERS Safety Report 21177613 (Version 2)
Quarter: 2022Q3

REPORT INFORMATION
  Report Type: Spontaneous
  Country: US (occurrence: US)
  Receive Date: 20220805
  Receipt Date: 20220820
  Transmission Date: 20221026
  Serious: Yes (Hospitalization, Disabling)
  Sender: FDA-Public Use
  Company Number: US-TEVA-2022-US-2060101

PATIENT
  Age: 34 Year
  Sex: Male

DRUGS (1)
  1. TRIAMCINOLONE [Suspect]
     Active Substance: TRIAMCINOLONE
     Indication: Product used for unknown indication
     Route: 045

REACTIONS (3)
  - Retinal vascular occlusion [Not Recovered/Not Resolved]
  - Chorioretinal disorder [Not Recovered/Not Resolved]
  - Blindness [Not Recovered/Not Resolved]
